FAERS Safety Report 18275410 (Version 5)
Quarter: 2021Q2

REPORT INFORMATION
  Report Type: Spontaneous
  Country: US (occurrence: US)
  Receive Date: 20200916
  Receipt Date: 20210503
  Transmission Date: 20210717
  Serious: Yes (Hospitalization, Other)
  Sender: FDA-Public Use
  Company Number: US-TAKEDA-2020TUS038953

PATIENT
  Sex: Female
  Weight: 52 kg

DRUGS (1)
  1. ICLUSIG [Suspect]
     Active Substance: PONATINIB
     Indication: ACUTE LYMPHOCYTIC LEUKAEMIA
     Dosage: 15 MILLIGRAM, QD
     Route: 065
     Dates: start: 20200130

REACTIONS (4)
  - Skin plaque [Unknown]
  - Full blood count decreased [Unknown]
  - Intermittent claudication [Unknown]
  - Deep vein thrombosis [Unknown]
